FAERS Safety Report 17664791 (Version 2)
Quarter: 2021Q2

REPORT INFORMATION
  Report Type: Spontaneous
  Country: US (occurrence: US)
  Receive Date: 20200414
  Receipt Date: 20210622
  Transmission Date: 20210716
  Serious: No
  Sender: FDA-Public Use
  Company Number: US-SA-2020SA094064

PATIENT
  Sex: Male

DRUGS (4)
  1. CYMBALTA [Concomitant]
     Active Substance: DULOXETINE HYDROCHLORIDE
  2. KEVZARA [Suspect]
     Active Substance: SARILUMAB
     Indication: RHEUMATOID ARTHRITIS
     Dosage: 200 MG, QOW
     Route: 058
     Dates: start: 202102
  3. LYRICA [Concomitant]
     Active Substance: PREGABALIN
  4. MS CONTIN [Concomitant]
     Active Substance: MORPHINE SULFATE

REACTIONS (2)
  - Liver function test increased [Unknown]
  - Spinal fusion surgery [Unknown]
